FAERS Safety Report 18867277 (Version 1)
Quarter: 2021Q1

REPORT INFORMATION
  Report Type: Spontaneous
  Country: US (occurrence: US)
  Receive Date: 20210209
  Receipt Date: 20210209
  Transmission Date: 20210420
  Serious: No
  Sender: FDA-Public Use
  Company Number: US-PFIZER INC-2021099694

PATIENT
  Age: 34 Year
  Sex: Female

DRUGS (1)
  1. RUXIENCE [Suspect]
     Active Substance: RITUXIMAB-PVVR
     Indication: MIXED CONNECTIVE TISSUE DISEASE
     Dosage: UNK (INFUSED AT 100MG/HR MAY INCREASE 100MG INCREMENTS EVERY 30MINUTES UP TO 400MG/HR)

REACTIONS (3)
  - Visual impairment [Unknown]
  - Off label use [Unknown]
  - Therapeutic response unexpected [Unknown]
